FAERS Safety Report 4556692-X (Version None)
Quarter: 2005Q1

REPORT INFORMATION
  Report Type: 
  Country: None (occurrence: None)
  Receive Date: 20050120
  Receipt Date: 20041025
  Transmission Date: 20050727
  Serious: Yes (Disabling)
  Sender: FDA-Public Use
  Company Number: 200421333GDDC

PATIENT
  Sex: 0

DRUGS (1)
  1. KETEK [Suspect]
     Indication: SINUSITIS
     Route: 048
     Dates: start: 20040820, end: 20040827

REACTIONS (3)
  - DYSPNOEA [None]
  - PALPITATIONS [None]
  - TREMOR [None]
